FAERS Safety Report 11450570 (Version 1)
Quarter: 2015Q3

REPORT INFORMATION
  Report Type: Spontaneous
  Country: US (occurrence: US)
  Receive Date: 20150903
  Receipt Date: 20150903
  Transmission Date: 20151125
  Serious: No
  Sender: FDA-Public Use
  Company Number: US-ROCHE-1039523

PATIENT
  Sex: Female

DRUGS (3)
  1. PEGASYS [Suspect]
     Active Substance: PEGINTERFERON ALFA-2A
     Indication: PRODUCT USED FOR UNKNOWN INDICATION
     Route: 065
     Dates: start: 20120124
  2. RIBAVIRIN. [Suspect]
     Active Substance: RIBAVIRIN
     Indication: PRODUCT USED FOR UNKNOWN INDICATION
     Route: 065
     Dates: start: 20120124
  3. PEGASYS [Suspect]
     Active Substance: PEGINTERFERON ALFA-2A
     Dosage: PROCLICK PRODUCT
     Route: 065

REACTIONS (8)
  - Nasopharyngitis [Unknown]
  - White blood cell count decreased [Unknown]
  - Urticaria [Unknown]
  - Vomiting [Unknown]
  - Injection site discolouration [Unknown]
  - Chills [Unknown]
  - Pain [Unknown]
  - Rash [Unknown]
